FAERS Safety Report 13429600 (Version 1)
Quarter: 2017Q2

REPORT INFORMATION
  Report Type: Spontaneous
  Country: ES (occurrence: ES)
  Receive Date: 20170412
  Receipt Date: 20170412
  Transmission Date: 20170830
  Serious: Yes (Other)
  Sender: FDA-Public Use
  Company Number: ES-ROCHE-1919133

PATIENT
  Age: 73 Year
  Sex: Male

DRUGS (1)
  1. MABTHERA [Suspect]
     Active Substance: RITUXIMAB
     Indication: NON-HODGKIN^S LYMPHOMA
     Dosage: STRENGTH: 2 VIALS OF 500 MG AND 100 MG RESP
     Route: 042
     Dates: start: 20170329, end: 20170329

REACTIONS (5)
  - Pallor [Recovered/Resolved]
  - Hypotension [Recovered/Resolved]
  - Hyperhidrosis [Recovered/Resolved]
  - Bradycardia [Recovered/Resolved]
  - Chills [Recovered/Resolved]

NARRATIVE: CASE EVENT DATE: 20170329
